FAERS Safety Report 23716778 (Version 2)
Quarter: 2024Q2

REPORT INFORMATION
  Report Type: Spontaneous
  Country: US (occurrence: US)
  Receive Date: 20240408
  Receipt Date: 20240516
  Transmission Date: 20240716
  Serious: Yes (Hospitalization)
  Sender: FDA-Public Use
  Company Number: US-LUPIN LIMITED-2024-02838

PATIENT
  Sex: Female

DRUGS (1)
  1. MISOPROSTOL [Suspect]
     Active Substance: MISOPROSTOL
     Indication: Cervical dilatation
     Dosage: UNK
     Route: 065

REACTIONS (3)
  - Uterine cervical laceration [Unknown]
  - Exposure during pregnancy [Unknown]
  - Off label use [Unknown]
